FAERS Safety Report 18568656 (Version 2)
Quarter: 2020Q4

REPORT INFORMATION
  Report Type: Spontaneous
  Country: DE (occurrence: DE)
  Receive Date: 20201202
  Receipt Date: 20201221
  Transmission Date: 20210114
  Serious: Yes (Hospitalization)
  Sender: FDA-Public Use
  Company Number: DE-DRREDDYS-GER/GER/20/0129455

PATIENT
  Age: 24 Year
  Sex: Female
  Weight: 60 kg

DRUGS (3)
  1. VENLAFAXINE [Suspect]
     Active Substance: VENLAFAXINE HYDROCHLORIDE
     Indication: DEPRESSED MOOD
     Dosage: VENLAFAXIN 75MG 1 TABLETTE AM TAG?SUIZIDVERSUCH MIT VENLAFAXIN UEBERDOSIERUNG (MENGE UNBEKANNT)
     Route: 048
     Dates: start: 20100901, end: 20200301
  2. VENLAFAXINE [Suspect]
     Active Substance: VENLAFAXINE HYDROCHLORIDE
     Indication: JOB DISSATISFACTION
  3. THYROXIN 75 [Concomitant]
     Indication: HYPOTHYROIDISM

REACTIONS (3)
  - Suicide attempt [Recovered/Resolved]
  - Intentional overdose [Unknown]
  - Medical induction of coma [Recovered/Resolved]

NARRATIVE: CASE EVENT DATE: 201512
